FAERS Safety Report 11410236 (Version 1)
Quarter: 2015Q3

REPORT INFORMATION
  Report Type: Spontaneous
  Country: US (occurrence: None)
  Receive Date: 20150820
  Receipt Date: 20150820
  Transmission Date: 20151125
  Serious: Yes (Hospitalization)
  Sender: FDA-Public Use
  Company Number: None

PATIENT
  Age: 58 Year
  Sex: Female
  Weight: 61.6 kg

DRUGS (5)
  1. ONCASPAR [Suspect]
     Active Substance: PEGASPARGASE
     Indication: ADMINISTRATION SITE REACTION
     Dates: end: 20150804
  2. CYTARABINE. [Suspect]
     Active Substance: CYTARABINE
     Dates: end: 20150804
  3. ETOPOSIDE (VP-16) [Suspect]
     Active Substance: ETOPOSIDE
     Dates: end: 20150804
  4. METHOTREXATE [Suspect]
     Active Substance: METHOTREXATE
     Dates: end: 20150731
  5. ONCASPAR [Suspect]
     Active Substance: PEGASPARGASE
     Indication: PLATELET COUNT DECREASED
     Dates: end: 20150804

REACTIONS (6)
  - Hypophagia [None]
  - Malaise [None]
  - Fatigue [None]
  - Failure to thrive [None]
  - Dyspnoea exertional [None]
  - Thrombocytopenia [None]

NARRATIVE: CASE EVENT DATE: 20150812
